FAERS Safety Report 15469165 (Version 1)
Quarter: 2018Q4

REPORT INFORMATION
  Report Type: Spontaneous
  Country: DE (occurrence: DE)
  Receive Date: 20181005
  Receipt Date: 20181005
  Transmission Date: 20190205
  Serious: Yes (Hospitalization, Other)
  Sender: FDA-Public Use
  Company Number: DE-BAUSCH-BL-2018-026786

PATIENT
  Age: 77 Year
  Sex: Male

DRUGS (4)
  1. INFLIXIMAB [Suspect]
     Active Substance: INFLIXIMAB
     Indication: AUTOIMMUNE COLITIS
     Dosage: TWO DOSES AT 5MG/KG
     Route: 065
     Dates: start: 2017
  2. PREDNISOLONE. [Suspect]
     Active Substance: PREDNISOLONE
     Indication: AUTOIMMUNE COLITIS
     Route: 065
     Dates: start: 2017
  3. NIVOLUMAB [Suspect]
     Active Substance: NIVOLUMAB
     Indication: METASTATIC MALIGNANT MELANOMA
     Dosage: 3 MG/KG EVERY 2 WEEKS
     Route: 065
     Dates: start: 2016
  4. INFLIXIMAB [Suspect]
     Active Substance: INFLIXIMAB
     Dosage: THIRD INFUSION [DOSAGE NOT SPECIFIED]
     Route: 065
     Dates: start: 201712

REACTIONS (4)
  - Pulmonary nocardiosis [Recovered/Resolved]
  - Autoimmune colitis [Recovered/Resolved]
  - Hyponatraemia [Unknown]
  - Cutaneous nocardiosis [Recovered/Resolved]

NARRATIVE: CASE EVENT DATE: 201707
